FAERS Safety Report 5191639-7 (Version None)
Quarter: 2006Q4

REPORT INFORMATION
  Report Type: 
  Country: None (occurrence: None)
  Receive Date: 20061219
  Receipt Date: 20061206
  Transmission Date: 20070319
  Serious: Yes (Hospitalization)
  Sender: FDA-Public Use
  Company Number: 2006150385

PATIENT
  Age: 69 Year
  Sex: Male

DRUGS (6)
  1. CLINDAMYCIN [Suspect]
     Indication: ABSCESS
     Dosage: INTRAVENOUS
     Route: 042
     Dates: start: 20060422, end: 20060423
  2. FUSIDIC ACID [Suspect]
     Indication: ABSCESS
     Dosage: INTRAVENOUS
     Route: 042
     Dates: start: 20060422, end: 20060423
  3. FOSFOMYCIN SODIUM (FOSFOMYCIN SODIUM) [Concomitant]
  4. DOMPERIDONE (DOMPERIDONE) [Concomitant]
  5. MORPHINE SULFATE [Concomitant]
  6. VANCOMYCIN HYDROCHLORIDE [Concomitant]

REACTIONS (6)
  - DRUG ERUPTION [None]
  - DYSPNOEA [None]
  - FACE OEDEMA [None]
  - RASH PUSTULAR [None]
  - SKIN TEST POSITIVE [None]
  - TOXIC SKIN ERUPTION [None]
